FAERS Safety Report 10534217 (Version 1)
Quarter: 2014Q4

REPORT INFORMATION
  Report Type: Spontaneous
  Country: US (occurrence: US)
  Receive Date: 20141022
  Receipt Date: 20141022
  Transmission Date: 20150529
  Serious: Yes (Hospitalization, Other)
  Sender: FDA-Public Use
  Company Number: US-ABBVIE-14P-163-1295519-00

PATIENT
  Age: 69 Year
  Sex: Male

DRUGS (1)
  1. ANDROGEL [Suspect]
     Active Substance: TESTOSTERONE
     Indication: BLOOD TESTOSTERONE DECREASED
     Route: 062
     Dates: start: 201208, end: 201210

REACTIONS (13)
  - Economic problem [Unknown]
  - Dysarthria [Unknown]
  - Aphasia [Unknown]
  - Social problem [Unknown]
  - Pain [Unknown]
  - Cerebrovascular accident [Unknown]
  - Injury [Unknown]
  - Anhedonia [Unknown]
  - Loss of employment [Unknown]
  - Irritability [Unknown]
  - Emotional distress [Unknown]
  - Fear [Unknown]
  - Anxiety [Unknown]

NARRATIVE: CASE EVENT DATE: 20121015
